FAERS Safety Report 14143093 (Version 2)
Quarter: 2018Q1

REPORT INFORMATION
  Report Type: Report from Study
  Country: CO (occurrence: CO)
  Receive Date: 20171030
  Receipt Date: 20180102
  Transmission Date: 20180508
  Serious: Yes (Hospitalization)
  Sender: FDA-Public Use
  Company Number: PHHY2017CO021325

PATIENT
  Sex: Male
  Weight: 68 kg

DRUGS (5)
  1. EXJADE [Suspect]
     Active Substance: DEFERASIROX
     Indication: IRON OVERLOAD
     Dosage: 500 MG, QD
     Route: 048
     Dates: start: 20161015
  2. DEXAMETHASONE. [Concomitant]
     Active Substance: DEXAMETHASONE
     Indication: PRODUCT USED FOR UNKNOWN INDICATION
     Route: 065
  3. DANAZOL. [Concomitant]
     Active Substance: DANAZOL
     Indication: PRODUCT USED FOR UNKNOWN INDICATION
     Route: 065
  4. EXJADE [Suspect]
     Active Substance: DEFERASIROX
     Indication: CEREBELLAR HYPOPLASIA
     Dosage: 500 MG, BID
     Route: 048
  5. ERYTHROPOIETIN [Concomitant]
     Active Substance: ERYTHROPOIETIN
     Indication: PRODUCT USED FOR UNKNOWN INDICATION
     Route: 065

REACTIONS (14)
  - Mouth haemorrhage [Unknown]
  - Appetite disorder [Unknown]
  - Tinnitus [Unknown]
  - Dry throat [Unknown]
  - Epistaxis [Unknown]
  - Discomfort [Unknown]
  - Urine odour abnormal [Unknown]
  - Product use in unapproved indication [Unknown]
  - Tachycardia [Unknown]
  - Weight decreased [Unknown]
  - Headache [Unknown]
  - Influenza [Unknown]
  - Platelet count decreased [Unknown]
  - Haemoglobin decreased [Unknown]
